FAERS Safety Report 18220784 (Version 2)
Quarter: 2024Q4

REPORT INFORMATION
  Report Type: Spontaneous
  Country: US (occurrence: US)
  Receive Date: 20200902
  Receipt Date: 20241126
  Transmission Date: 20250114
  Serious: No
  Sender: SANOFI AVENTIS
  Company Number: US-SA-2020SA233086

PATIENT
  Age: 48 Year
  Sex: Male
  Weight: 75 kg

DRUGS (2)
  1. DUPIXENT [Suspect]
     Active Substance: DUPILUMAB
     Indication: Dermatitis atopic
     Dosage: 300 MG, QOW
     Route: 058
     Dates: start: 20191224
  2. BROMELAINS [Concomitant]
     Active Substance: BROMELAINS
     Dosage: UNK

REACTIONS (3)
  - Drug hypersensitivity [Unknown]
  - Wheezing [Unknown]
  - Erythema [Unknown]

NARRATIVE: CASE EVENT DATE: 20240101
